FAERS Safety Report 9311582 (Version 1)
Quarter: 2013Q2

REPORT INFORMATION
  Report Type: Spontaneous
  Country: US (occurrence: US)
  Receive Date: 20130528
  Receipt Date: 20130528
  Transmission Date: 20140414
  Serious: Yes (Other)
  Sender: FDA-Public Use
  Company Number: US-SANOFI-AVENTIS-2013SA053190

PATIENT
  Age: 62 Year
  Sex: Male

DRUGS (1)
  1. ALLEGRA 24 HOUR [Suspect]
     Route: 048
     Dates: start: 20130520

REACTIONS (1)
  - Bronchitis [Not Recovered/Not Resolved]
